FAERS Safety Report 8025409 (Version 2)
Quarter: 2013Q2

REPORT INFORMATION
  Report Type: Report from Study
  Country: MX (occurrence: MX)
  Receive Date: 20110707
  Receipt Date: 20130425
  Transmission Date: 20140414
  Serious: Yes (Other)
  Sender: FDA-Public Use
  Company Number: PHHY2010MX51929

PATIENT
  Age: 84 Year
  Sex: Female

DRUGS (4)
  1. CO-DIOVAN [Suspect]
     Indication: HYPERTENSION
     Dosage: 1 TABLET (80/12.5 MG) DAILY
     Route: 048
     Dates: start: 200906
  2. CO-DIOVAN [Suspect]
     Dosage: 1 TABLET (160/12.5MG) DAILY
     Dates: start: 201105
  3. RIVOTRIL [Concomitant]
  4. DEBRIDAT [Concomitant]
     Dosage: UNK UKN, UNK

REACTIONS (6)
  - Cardiac disorder [Unknown]
  - Blood pressure increased [Recovered/Resolved]
  - Malaise [Recovered/Resolved]
  - Palpitations [Recovered/Resolved]
  - Headache [Recovered/Resolved]
  - Blood pressure decreased [Recovered/Resolved]
